FAERS Safety Report 9912534 (Version 1)
Quarter: 2014Q1

REPORT INFORMATION
  Report Type: Spontaneous
  Country: FR (occurrence: FR)
  Receive Date: 20140220
  Receipt Date: 20140220
  Transmission Date: 20141002
  Serious: Yes (Death)
  Sender: FDA-Public Use
  Company Number: FR-009507513-1402FRA007167

PATIENT
  Age: 89 Year
  Sex: Female
  Weight: 58.3 kg

DRUGS (2)
  1. ORGARAN [Suspect]
     Indication: HEPARIN-INDUCED THROMBOCYTOPENIA
     Dosage: 2000 IU, BID
     Route: 058
     Dates: start: 20140102, end: 20140105
  2. COUMADIN [Suspect]
     Indication: PULMONARY EMBOLISM
     Dosage: UNK
     Route: 048
     Dates: start: 20131225, end: 20140102

REACTIONS (1)
  - Retroperitoneal haematoma [Fatal]
